FAERS Safety Report 9506710 (Version 8)
Quarter: 2017Q2

REPORT INFORMATION
  Report Type: Report from Study
  Country: US (occurrence: US)
  Receive Date: 20130908
  Receipt Date: 20170606
  Transmission Date: 20170830
  Serious: Yes (Hospitalization)
  Sender: FDA-Public Use
  Company Number: US-SANOFI-AVENTIS-2013SA088859

PATIENT
  Age: 59 Year
  Sex: Female
  Weight: 54.4 kg

DRUGS (18)
  1. AUBAGIO [Suspect]
     Active Substance: TERIFLUNOMIDE
     Indication: MULTIPLE SCLEROSIS
     Route: 048
     Dates: start: 20130302
  2. PRILOSEC [Concomitant]
     Active Substance: OMEPRAZOLE MAGNESIUM
     Indication: ULCER
  3. ASA [Concomitant]
     Active Substance: ASPIRIN
     Indication: ATRIAL FIBRILLATION
  4. PRILOSEC [Concomitant]
     Active Substance: OMEPRAZOLE MAGNESIUM
     Indication: GASTROOESOPHAGEAL REFLUX DISEASE
  5. AUBAGIO [Suspect]
     Active Substance: TERIFLUNOMIDE
     Indication: CHOLECYSTITIS
     Route: 048
     Dates: start: 20130411, end: 2017
  6. CLARITIN [Concomitant]
     Active Substance: LORATADINE
     Indication: HYPERSENSITIVITY
  7. AUBAGIO [Suspect]
     Active Substance: TERIFLUNOMIDE
     Indication: MULTIPLE SCLEROSIS
     Route: 048
     Dates: start: 2017
  8. AUBAGIO [Suspect]
     Active Substance: TERIFLUNOMIDE
     Indication: CHOLECYSTITIS
     Route: 048
     Dates: start: 2017
  9. AUBAGIO [Suspect]
     Active Substance: TERIFLUNOMIDE
     Indication: MULTIPLE SCLEROSIS
     Route: 048
     Dates: start: 20120301
  10. AUBAGIO [Suspect]
     Active Substance: TERIFLUNOMIDE
     Indication: CHOLECYSTITIS
     Route: 048
     Dates: start: 20130302
  11. AUBAGIO [Suspect]
     Active Substance: TERIFLUNOMIDE
     Indication: CHOLECYSTITIS
     Route: 048
  12. PINDOLOL. [Concomitant]
     Active Substance: PINDOLOL
     Indication: ATRIAL FIBRILLATION
  13. AUBAGIO [Suspect]
     Active Substance: TERIFLUNOMIDE
     Indication: CHOLECYSTITIS
     Route: 048
     Dates: start: 20120301
  14. AUBAGIO [Suspect]
     Active Substance: TERIFLUNOMIDE
     Indication: MULTIPLE SCLEROSIS
     Route: 048
     Dates: start: 20130411, end: 2017
  15. AUBAGIO [Suspect]
     Active Substance: TERIFLUNOMIDE
     Indication: MULTIPLE SCLEROSIS
     Route: 048
  16. COPAXONE [Concomitant]
     Active Substance: GLATIRAMER ACETATE
  17. DIGOXIN. [Concomitant]
     Active Substance: DIGOXIN
     Indication: ATRIAL FIBRILLATION
  18. PINDOLOL. [Concomitant]
     Active Substance: PINDOLOL
     Indication: SUPRAVENTRICULAR TACHYCARDIA

REACTIONS (11)
  - Drug dose omission [Unknown]
  - Cholelithiasis [Recovered/Resolved]
  - Cholecystitis [Unknown]
  - Liver function test abnormal [Recovered/Resolved]
  - Drug ineffective [Unknown]
  - Muscle strain [Not Recovered/Not Resolved]
  - Visual impairment [Unknown]
  - Dyspnoea [Not Recovered/Not Resolved]
  - Unevaluable event [Unknown]
  - Sleep apnoea syndrome [Not Recovered/Not Resolved]
  - Back pain [Not Recovered/Not Resolved]

NARRATIVE: CASE EVENT DATE: 20130601
